FAERS Safety Report 22088342 (Version 1)
Quarter: 2023Q1

REPORT INFORMATION
  Report Type: Spontaneous
  Country: US (occurrence: US)
  Receive Date: 20230313
  Receipt Date: 20230313
  Transmission Date: 20230418
  Serious: Yes (Other)
  Sender: FDA-Public Use
  Company Number: US-RK PHARMA, INC-20230300018

PATIENT
  Sex: Female

DRUGS (3)
  1. MYCOPHENOLIC ACID [Suspect]
     Active Substance: MYCOPHENOLIC ACID
     Indication: Immunosuppression
     Dosage: UNKNOWN
     Route: 065
  2. PROGRAF [Suspect]
     Active Substance: TACROLIMUS
     Indication: Immunosuppression
     Dosage: 0.05 MILLIGRAM/KILOGRAM, BID
  3. METHYLPREDNISOLONE [Suspect]
     Active Substance: METHYLPREDNISOLONE
     Indication: Immunosuppression
     Dosage: 2.5 GRAM

REACTIONS (4)
  - Cervicitis [Unknown]
  - Acute kidney injury [Unknown]
  - Nephropathy toxic [Unknown]
  - Maternal exposure before pregnancy [Unknown]
